FAERS Safety Report 15453561 (Version 7)
Quarter: 2019Q1

REPORT INFORMATION
  Report Type: Report from Study
  Country: US (occurrence: US)
  Receive Date: 20181001
  Receipt Date: 20190319
  Transmission Date: 20190417
  Serious: Yes (Hospitalization, Other)
  Sender: FDA-Public Use
  Company Number: US-ACTELION-A-US2018-175338

PATIENT
  Age: 56 Year
  Sex: Female

DRUGS (21)
  1. URSODIOL. [Concomitant]
     Active Substance: URSODIOL
     Dosage: 600 MG, BID
  2. HYDROXYCHLOROQUINE [Concomitant]
     Active Substance: HYDROXYCHLOROQUINE
     Dosage: 200 MG, QD
  3. SPIRONOLACTONE. [Concomitant]
     Active Substance: SPIRONOLACTONE
     Dosage: 25 MG, QD
  4. IRON [Concomitant]
     Active Substance: IRON
     Dosage: 325 MG, BID
  5. PIPERACILLIN AND TAZOBACTAM [Concomitant]
     Active Substance: PIPERACILLIN SODIUM\TAZOBACTAM SODIUM
     Dosage: UNK
     Dates: start: 20190119
  6. ONDANSETRON [Concomitant]
     Active Substance: ONDANSETRON
     Dosage: 4 MG, UNK
  7. FUROSEMIDE. [Concomitant]
     Active Substance: FUROSEMIDE
     Dosage: 40 MG, QD
  8. FUROSEMIDE. [Concomitant]
     Active Substance: FUROSEMIDE
     Dosage: 60 MG, BID
     Route: 042
  9. OPSUMIT [Suspect]
     Active Substance: MACITENTAN
     Indication: PULMONARY ARTERIAL HYPERTENSION
     Dosage: 10 MG, QD
     Route: 048
     Dates: start: 20180620, end: 20190304
  10. ENULOSE [Concomitant]
     Active Substance: LACTULOSE
     Dosage: UNK
     Dates: start: 20180410, end: 20180612
  11. CEFPODOXIME [Concomitant]
     Active Substance: CEFPODOXIME
     Dosage: UNK
     Dates: start: 20190119
  12. ADEMPAS [Concomitant]
     Active Substance: RIOCIGUAT
  13. XIFAXAN [Concomitant]
     Active Substance: RIFAXIMIN
     Dosage: 550 MG, QD
  14. SPIRONOLACTONE. [Concomitant]
     Active Substance: SPIRONOLACTONE
     Dosage: 100 MG, BID
  15. LEVOTHYROXINE. [Concomitant]
     Active Substance: LEVOTHYROXINE
     Dosage: 50 MG, QD
  16. OMEPRAZOLE. [Concomitant]
     Active Substance: OMEPRAZOLE
     Dosage: 40 MG, QD
  17. CEFTRIAXONE. [Concomitant]
     Active Substance: CEFTRIAXONE
     Dosage: UNK
     Dates: start: 20190119
  18. LEVOFLOXACIN. [Concomitant]
     Active Substance: LEVOFLOXACIN
     Dosage: UNK
     Dates: start: 20190119
  19. SERTRALINE [Concomitant]
     Active Substance: SERTRALINE HYDROCHLORIDE
     Dosage: 50 MG, QD
  20. CHOLESTYRAMINE. [Concomitant]
     Active Substance: CHOLESTYRAMINE
     Dosage: 4 G, QD
  21. LACTULOSE. [Concomitant]
     Active Substance: LACTULOSE
     Dosage: 10G/15ML , TID

REACTIONS (40)
  - Hepatic cirrhosis [Unknown]
  - Oedema peripheral [Recovering/Resolving]
  - Right atrial dilatation [Recovered/Resolved]
  - Oedema [Recovered/Resolved]
  - Weight increased [Unknown]
  - Headache [Not Recovered/Not Resolved]
  - Eye injury [Not Recovered/Not Resolved]
  - Pain [Unknown]
  - Blood bilirubin increased [Recovering/Resolving]
  - Fluid overload [Not Recovered/Not Resolved]
  - Pulmonary arterial pressure increased [Recovering/Resolving]
  - Haemoglobin decreased [Not Recovered/Not Resolved]
  - Nausea [Recovering/Resolving]
  - Pneumonia [Recovered/Resolved]
  - Quality of life decreased [Unknown]
  - Blister [Recovered/Resolved]
  - Insomnia [Unknown]
  - Palpitations [Unknown]
  - Cough [Unknown]
  - Nutritional supplementation [Recovering/Resolving]
  - Acute kidney injury [Recovered/Resolved]
  - Tremor [Unknown]
  - Dyspnoea [Recovered/Resolved]
  - Anaemia [Not Recovered/Not Resolved]
  - Thrombocytopenia [Not Recovered/Not Resolved]
  - Hepatic failure [Not Recovered/Not Resolved]
  - Generalised oedema [Unknown]
  - Liver transplant [Unknown]
  - Condition aggravated [Unknown]
  - Fatigue [Unknown]
  - Chest discomfort [Unknown]
  - Ocular discomfort [Not Recovered/Not Resolved]
  - General physical health deterioration [Unknown]
  - Nervousness [Unknown]
  - Vomiting [Unknown]
  - Orthopnoea [Unknown]
  - Dyspnoea paroxysmal nocturnal [Unknown]
  - Right ventricular dilatation [Recovered/Resolved]
  - Pulmonary oedema [Recovered/Resolved]
  - Gait disturbance [Unknown]

NARRATIVE: CASE EVENT DATE: 20180702
